FAERS Safety Report 13632932 (Version 1)
Quarter: 2017Q2

REPORT INFORMATION
  Report Type: Report from Study
  Country: GB (occurrence: GB)
  Receive Date: 20170609
  Receipt Date: 20170609
  Transmission Date: 20170830
  Serious: Yes (Hospitalization, Other)
  Sender: FDA-Public Use
  Company Number: GB-AMGEN-GBRSL2017084612

PATIENT
  Age: 67 Year
  Sex: Female

DRUGS (1)
  1. ARANESP [Suspect]
     Active Substance: DARBEPOETIN ALFA
     Indication: PRODUCT USED FOR UNKNOWN INDICATION
     Dosage: 30 MUG, UNK
     Route: 065

REACTIONS (6)
  - Epilepsy [Unknown]
  - Type 1 diabetes mellitus [Unknown]
  - Arteriovenous fistula site complication [Unknown]
  - Renal failure [Unknown]
  - Hospitalisation [Unknown]
  - Osteoporosis [Unknown]

NARRATIVE: CASE EVENT DATE: 2016
